FAERS Safety Report 7471052-X (Version None)
Quarter: 2011Q2

REPORT INFORMATION
  Report Type: 
  Country: None (occurrence: None)
  Receive Date: 20110510
  Receipt Date: 20110505
  Transmission Date: 20111010
  Serious: Yes (Other)
  Sender: FDA-Public Use
  Company Number: US-PFIZER INC-2011097407

PATIENT
  Sex: Male

DRUGS (1)
  1. SOLU-MEDROL [Suspect]
     Dosage: 10 MG, 1X/DAY FROM 40 MG VIAL

REACTIONS (4)
  - SWELLING [None]
  - ERYTHEMA [None]
  - ANAPHYLACTIC REACTION [None]
  - DYSPNOEA [None]
